FAERS Safety Report 5365446-6 (Version None)
Quarter: 2007Q2

REPORT INFORMATION
  Report Type: 
  Country: None (occurrence: None)
  Receive Date: 20070621
  Receipt Date: 20070524
  Transmission Date: 20071010
  Serious: Yes (Death, Hospitalization)
  Sender: FDA-Public Use
  Company Number: JP-MERCK-0203USA00337

PATIENT
  Age: 64 Year
  Sex: Female
  Weight: 38 kg

DRUGS (8)
  1. CLINORIL [Suspect]
     Indication: PAIN
     Route: 048
     Dates: start: 19900101, end: 19940319
  2. CLINORIL [Suspect]
     Route: 048
     Dates: end: 19961001
  3. CLINORIL [Suspect]
     Indication: RHEUMATOID ARTHRITIS
     Route: 048
     Dates: start: 19900101, end: 19940319
  4. CLINORIL [Suspect]
     Route: 048
     Dates: end: 19961001
  5. PREDNISOLONE ACETATE [Concomitant]
     Indication: RHEUMATOID ARTHRITIS
     Route: 048
     Dates: start: 19900101
  6. TEPRENONE [Concomitant]
     Indication: GASTRITIS
     Route: 048
     Dates: start: 19900101
  7. PEPCID [Concomitant]
     Indication: GASTRITIS
     Route: 048
     Dates: start: 19900101
  8. NIFEDIPINE [Concomitant]
     Indication: HYPERTENSION
     Route: 048
     Dates: start: 19900101

REACTIONS (2)
  - LARGE INTESTINAL ULCER [None]
  - PNEUMONIA [None]
